FAERS Safety Report 4695474-5 (Version None)
Quarter: 2005Q2

REPORT INFORMATION
  Report Type: 
  Country: None (occurrence: None)
  Receive Date: 20050620
  Receipt Date: 20050620
  Transmission Date: 20051028
  Serious: Yes (Hospitalization)
  Sender: FDA-Public Use
  Company Number: None

PATIENT
  Age: 58 Year
  Sex: Male
  Weight: 80.7403 kg

DRUGS (1)
  1. COUMADIN [Suspect]
     Indication: ATRIAL FLUTTER
     Dosage: 8MG AND 12MG     8MGX6,  12MGX1    ORAL
     Route: 048
     Dates: start: 20030117, end: 20050619

REACTIONS (3)
  - ASTHENIA [None]
  - HAEMATURIA [None]
  - INTERNATIONAL NORMALISED RATIO FLUCTUATION [None]
